FAERS Safety Report 15262301 (Version 1)
Quarter: 2018Q3

REPORT INFORMATION
  Report Type: Report from Study
  Country: US (occurrence: US)
  Receive Date: 20180809
  Receipt Date: 20180809
  Transmission Date: 20181010
  Serious: Yes (Death)
  Sender: FDA-Public Use
  Company Number: US-ACTELION-A-US2017-163026

PATIENT
  Age: 74 Year
  Sex: Female
  Weight: 83.9 kg

DRUGS (5)
  1. UPTRAVI [Suspect]
     Active Substance: SELEXIPAG
     Indication: PULMONARY ARTERIAL HYPERTENSION
     Dosage: 1600 MCG, BID
     Route: 048
     Dates: start: 20171129, end: 20180110
  2. REVATIO [Concomitant]
     Active Substance: SILDENAFIL CITRATE
  3. UPTRAVI [Suspect]
     Active Substance: SELEXIPAG
     Dosage: 1000 MCG, BID
     Route: 048
  4. UPTRAVI [Suspect]
     Active Substance: SELEXIPAG
     Dosage: 800 MCG, BID
     Route: 048
  5. COUMADIN [Concomitant]
     Active Substance: WARFARIN SODIUM

REACTIONS (25)
  - Nasopharyngitis [Unknown]
  - Joint swelling [Unknown]
  - Headache [Unknown]
  - Chest discomfort [Unknown]
  - Abdominal pain upper [Unknown]
  - Death [Fatal]
  - Myalgia [Unknown]
  - Asthenia [Unknown]
  - Flushing [Unknown]
  - Cardiac disorder [Unknown]
  - Blood pressure systolic increased [Unknown]
  - Peripheral swelling [Unknown]
  - Cough [Unknown]
  - Fluid retention [Unknown]
  - Rash [Unknown]
  - Pain in jaw [Unknown]
  - Dyspnoea [Unknown]
  - Chest pain [Unknown]
  - Malaise [Unknown]
  - Swelling [Unknown]
  - Oxygen saturation decreased [Unknown]
  - Muscle spasms [Unknown]
  - Nausea [Unknown]
  - Therapy non-responder [Unknown]
  - Heart rate increased [Unknown]

NARRATIVE: CASE EVENT DATE: 2018
